FAERS Safety Report 25379286 (Version 4)
Quarter: 2025Q3

REPORT INFORMATION
  Report Type: Spontaneous
  Country: JP (occurrence: JP)
  Receive Date: 20250530
  Receipt Date: 20250724
  Transmission Date: 20251020
  Serious: Yes (Hospitalization, Other)
  Sender: PFIZER
  Company Number: JP-PFIZER INC-PV202400160227

PATIENT
  Age: 81 Year
  Sex: Female

DRUGS (2)
  1. ELREXFIO [Suspect]
     Active Substance: ELRANATAMAB-BCMM
     Indication: Plasma cell myeloma
     Route: 058
     Dates: start: 202408
  2. ELREXFIO [Suspect]
     Active Substance: ELRANATAMAB-BCMM

REACTIONS (5)
  - Malaise [Unknown]
  - Decreased appetite [Unknown]
  - Diarrhoea [Unknown]
  - Cytomegalovirus enterocolitis [Unknown]
  - Cytomegalovirus test positive [Recovered/Resolved]

NARRATIVE: CASE EVENT DATE: 20240801
